FAERS Safety Report 17874119 (Version 1)
Quarter: 2020Q2

REPORT INFORMATION
  Report Type: Spontaneous
  Country: US (occurrence: US)
  Receive Date: 20200609
  Receipt Date: 20200609
  Transmission Date: 20200714
  Serious: No
  Sender: FDA-Public Use
  Company Number: US-AUROBINDO-AUR-APL-2019-104182

PATIENT
  Age: 69 Year
  Sex: Female
  Weight: 54.42 kg

DRUGS (3)
  1. VENLAFAXINE EXTENDED RELEASE CAPSULE [Suspect]
     Active Substance: VENLAFAXINE HYDROCHLORIDE
     Indication: DEPRESSION
     Dosage: 75 MILLIGRAM
     Route: 065
  2. VENLAFAXINE EXTENDED RELEASE CAPSULE [Suspect]
     Active Substance: VENLAFAXINE HYDROCHLORIDE
     Indication: ANXIETY
     Dosage: 37.5 MILLIGRAM, EVERY OTHER DAY, THEN EVERY 3 DAYS AND NOW AT EVERY 4 DAYS
     Route: 065
  3. VENLAFAXINE EXTENDED RELEASE CAPSULE [Suspect]
     Active Substance: VENLAFAXINE HYDROCHLORIDE
     Dosage: 37.5 MILLIGRAM
     Route: 065

REACTIONS (10)
  - Dizziness [Recovering/Resolving]
  - Headache [Recovering/Resolving]
  - Disturbance in attention [Recovering/Resolving]
  - Feeling abnormal [Recovering/Resolving]
  - Tinnitus [Recovering/Resolving]
  - Therapy cessation [Not Recovered/Not Resolved]
  - Diarrhoea [Recovering/Resolving]
  - Abdominal discomfort [Recovering/Resolving]
  - Withdrawal syndrome [Recovering/Resolving]
  - Malaise [Recovering/Resolving]

NARRATIVE: CASE EVENT DATE: 201908
